FAERS Safety Report 16818576 (Version 1)
Quarter: 2019Q3

REPORT INFORMATION
  Report Type: Spontaneous
  Country: US (occurrence: US)
  Receive Date: 20190917
  Receipt Date: 20190917
  Transmission Date: 20191005
  Serious: No
  Sender: FDA-Public Use
  Company Number: US-JNJFOC-20190909008

PATIENT
  Sex: Female

DRUGS (5)
  1. BIOTIN [Concomitant]
     Active Substance: BIOTIN
  2. XARELTO [Suspect]
     Active Substance: RIVAROXABAN
     Indication: THROMBOSIS
     Route: 048
     Dates: start: 2012
  3. XARELTO [Suspect]
     Active Substance: RIVAROXABAN
     Route: 048
     Dates: start: 201710
  4. ADVIL [Concomitant]
     Active Substance: IBUPROFEN
  5. BABY ASPIRIN [Concomitant]
     Active Substance: ASPIRIN
     Route: 065

REACTIONS (2)
  - Urticaria [Not Recovered/Not Resolved]
  - Bone loss [Unknown]
